FAERS Safety Report 25623418 (Version 3)
Quarter: 2025Q3

REPORT INFORMATION
  Report Type: Spontaneous
  Country: JP (occurrence: JP)
  Receive Date: 20250730
  Receipt Date: 20250813
  Transmission Date: 20251020
  Serious: Yes (Other)
  Sender: SANOFI AVENTIS
  Company Number: JP-SA-2025SA222005

PATIENT
  Age: 64 Year
  Sex: Male

DRUGS (10)
  1. RIFADIN [Suspect]
     Active Substance: RIFAMPIN
     Indication: Bacillus Calmette-Guerin infection
     Dosage: 600 MG, QD
     Dates: start: 202212, end: 202305
  2. RIFADIN [Suspect]
     Active Substance: RIFAMPIN
     Indication: Infection
  3. ISONIAZID [Suspect]
     Active Substance: ISONIAZID
     Indication: Bacillus Calmette-Guerin infection
     Dosage: 300 MG, QD
     Dates: start: 202212, end: 202305
  4. ISONIAZID [Suspect]
     Active Substance: ISONIAZID
     Indication: Infection
  5. LEVOFLOXACIN [Suspect]
     Active Substance: LEVOFLOXACIN
     Indication: Bacillus Calmette-Guerin infection
     Dosage: 500 MG, QD
     Dates: start: 202212, end: 202305
  6. LEVOFLOXACIN [Suspect]
     Active Substance: LEVOFLOXACIN
     Indication: Infection
  7. GEMCITABINE [Suspect]
     Active Substance: GEMCITABINE
     Indication: Bladder cancer
     Dosage: 1000 MG/M2, QW, ON DAYS 1, 8,15 (ADMINISTERED EVERY 3 WEEKS)
     Dates: start: 202304, end: 202305
  8. CISPLATIN [Suspect]
     Active Substance: CISPLATIN
     Indication: Bladder cancer
     Dosage: 25 MG/M2, Q3W ON DAY 2 (ADMINISTERED EVERY 3 WEEKS)
     Dates: start: 202304, end: 202305
  9. CEFTRIAXONE SODIUM [Concomitant]
     Active Substance: CEFTRIAXONE SODIUM
     Indication: Renal abscess
  10. PIPERACILLIN SODIUM\TAZOBACTAM SODIUM [Concomitant]
     Active Substance: PIPERACILLIN SODIUM\TAZOBACTAM SODIUM
     Indication: Renal abscess

REACTIONS (2)
  - Neutropenia [Unknown]
  - Thrombocytopenia [Unknown]

NARRATIVE: CASE EVENT DATE: 20230101
